FAERS Safety Report 10424836 (Version 6)
Quarter: 2015Q1

REPORT INFORMATION
  Report Type: Spontaneous
  Country: US (occurrence: US)
  Receive Date: 20140902
  Receipt Date: 20150126
  Transmission Date: 20150720
  Serious: Yes (Other)
  Sender: FDA-Public Use
  Company Number: US-PFIZER INC-2014243931

PATIENT
  Age: 71 Year
  Sex: Female

DRUGS (2)
  1. SYMBICORT [Concomitant]
     Active Substance: BUDESONIDE\FORMOTEROL FUMARATE DIHYDRATE
     Indication: ASTHMA
     Dosage: INHALER
     Route: 055
  2. CELEBREX [Suspect]
     Active Substance: CELECOXIB
     Dosage: UNK

REACTIONS (13)
  - Disease progression [Unknown]
  - Arthralgia [Unknown]
  - Procedural pain [Unknown]
  - Drug ineffective [Unknown]
  - Pain [Unknown]
  - Arthritis [Unknown]
  - Diabetes mellitus [Unknown]
  - Insomnia [Unknown]
  - Synovial cyst [Unknown]
  - Pain in extremity [Unknown]
  - Malaise [Unknown]
  - Hypersensitivity [Unknown]
  - Arthropathy [Unknown]

NARRATIVE: CASE EVENT DATE: 20140911
